FAERS Safety Report 6975409-2 (Version None)
Quarter: 2010Q3

REPORT INFORMATION
  Report Type: 
  Country: None (occurrence: None)
  Receive Date: 20100910
  Receipt Date: 20090316
  Transmission Date: 20110219
  Serious: No
  Sender: FDA-Public Use
  Company Number: US-WYE-H08615709

PATIENT
  Sex: Female
  Weight: 59.02 kg

DRUGS (3)
  1. PRISTIQ [Suspect]
     Indication: DEPRESSION
     Route: 048
     Dates: start: 20080101
  2. MIACALCIN [Concomitant]
  3. SINEQUAN [Concomitant]

REACTIONS (2)
  - FATIGUE [None]
  - INCREASED APPETITE [None]
